FAERS Safety Report 8387062-4 (Version None)
Quarter: 2012Q2

REPORT INFORMATION
  Report Type: 
  Country: None (occurrence: None)
  Receive Date: 20120525
  Receipt Date: 20120522
  Transmission Date: 20120825
  Serious: Yes (Hospitalization)
  Sender: FDA-Public Use
  Company Number: US-ACTELION-A-US2012-64708

PATIENT

DRUGS (2)
  1. TRACLEER [Suspect]
     Indication: PULMONARY ARTERIAL HYPERTENSION
     Dosage: UNK
     Route: 048
     Dates: start: 20110114
  2. CALCIUM CHANNEL BLOCKERS [Concomitant]

REACTIONS (4)
  - FALL [None]
  - RETCHING [None]
  - PAIN IN EXTREMITY [None]
  - DYSPNOEA [None]
